FAERS Safety Report 22386190 (Version 1)
Quarter: 2023Q2

REPORT INFORMATION
  Report Type: Spontaneous
  Country: JP (occurrence: JP)
  Receive Date: 20230530
  Receipt Date: 20230530
  Transmission Date: 20230722
  Serious: Yes (Other)
  Sender: FDA-Public Use
  Company Number: JP-BRISTOL-MYERS SQUIBB COMPANY-2023-074652

PATIENT
  Age: 59 Year
  Sex: Male

DRUGS (2)
  1. YERVOY [Suspect]
     Active Substance: IPILIMUMAB
     Indication: Malignant melanoma
  2. OPDIVO [Suspect]
     Active Substance: NIVOLUMAB
     Indication: Malignant melanoma

REACTIONS (7)
  - Immune-mediated dermatitis [Unknown]
  - Adrenocorticotropic hormone deficiency [Unknown]
  - Immune-mediated thyroiditis [Unknown]
  - Immune-mediated pancreatitis [Recovering/Resolving]
  - Type 1 diabetes mellitus [Unknown]
  - Enterocolitis [Unknown]
  - Leukoderma [Unknown]
